FAERS Safety Report 11286699 (Version 1)
Quarter: 2015Q3

REPORT INFORMATION
  Report Type: Spontaneous
  Country: US (occurrence: US)
  Receive Date: 20150721
  Receipt Date: 20150721
  Transmission Date: 20151125
  Serious: No
  Sender: FDA-Public Use
  Company Number: US-UNITED THERAPEUTICS-UNT-2015-003044

PATIENT
  Age: 65 Year
  Sex: Male
  Weight: 77.98 kg

DRUGS (6)
  1. TYVASO [Suspect]
     Active Substance: TREPROSTINIL
     Dosage: 18-108 ?G, QID
     Dates: start: 20150309
  2. TYVASO [Suspect]
     Active Substance: TREPROSTINIL
     Indication: PULMONARY HYPERTENSION
     Dosage: 120 MICROGRAMS, QID
     Dates: start: 20150304
  3. TYVASO [Suspect]
     Active Substance: TREPROSTINIL
     Dosage: 18-72  ?G, QID
     Dates: start: 20150309
  4. ADCIRCA [Concomitant]
     Active Substance: TADALAFIL
     Indication: PRODUCT USED FOR UNKNOWN INDICATION
  5. TYVASO [Suspect]
     Active Substance: TREPROSTINIL
     Dosage: 18-54  ?G, QID
     Dates: start: 20150309
  6. LETAIRIS [Concomitant]
     Active Substance: AMBRISENTAN
     Indication: PRODUCT USED FOR UNKNOWN INDICATION

REACTIONS (7)
  - Pruritus generalised [Unknown]
  - Tongue oedema [Unknown]
  - Vomiting [Unknown]
  - Malaise [Unknown]
  - Nasal congestion [Unknown]
  - Diarrhoea [Unknown]
  - Cough [Unknown]

NARRATIVE: CASE EVENT DATE: 201503
